FAERS Safety Report 21042310 (Version 3)
Quarter: 2023Q2

REPORT INFORMATION
  Report Type: Spontaneous
  Country: CA (occurrence: None)
  Receive Date: 20220705
  Receipt Date: 20230603
  Transmission Date: 20230722
  Serious: Yes (Death)
  Sender: FDA-Public Use
  Company Number: CA-ROCHE-3127450

PATIENT
  Sex: Male

DRUGS (13)
  1. CLONAZEPAM [Suspect]
     Active Substance: CLONAZEPAM
     Indication: Pain
     Route: 065
  2. AMITRIPTYLINE [Suspect]
     Active Substance: AMITRIPTYLINE
     Indication: Pain
     Route: 065
  3. TYLENOL WITH CODEINE [Suspect]
     Active Substance: ACETAMINOPHEN\CODEINE PHOSPHATE
     Indication: Pain
     Route: 065
  4. MS CONTIN [Suspect]
     Active Substance: MORPHINE SULFATE
     Indication: Product used for unknown indication
     Route: 048
  5. OXYCODONE HYDROCHLORIDE [Suspect]
     Active Substance: OXYCODONE HYDROCHLORIDE
     Indication: Product used for unknown indication
     Route: 065
  6. LUVOX [Suspect]
     Active Substance: FLUVOXAMINE MALEATE
     Indication: Pain
     Route: 065
  7. TORADOL [Suspect]
     Active Substance: KETOROLAC TROMETHAMINE
     Indication: Pain
     Route: 065
  8. ACETAMINOPHEN\OXYCODONE HYDROCHLORIDE [Suspect]
     Active Substance: ACETAMINOPHEN\OXYCODONE HYDROCHLORIDE
     Indication: Pain
     Route: 065
  9. OXYCONTIN [Suspect]
     Active Substance: OXYCODONE HYDROCHLORIDE
     Indication: Product used for unknown indication
     Route: 048
  10. ACETAMINOPHEN\OXYCODONE HYDROCHLORIDE\OXYCODONE TEREPHTHALATE [Suspect]
     Active Substance: ACETAMINOPHEN\OXYCODONE HYDROCHLORIDE\OXYCODONE TEREPHTHALATE
     Indication: Pain
     Route: 065
  11. SENOKOT [Suspect]
     Active Substance: SENNOSIDES
     Indication: Product used for unknown indication
     Route: 065
  12. DOXEPIN [Suspect]
     Active Substance: DOXEPIN
     Indication: Pain
     Route: 065
  13. NORTRIPTYLINE [Suspect]
     Active Substance: NORTRIPTYLINE
     Indication: Pain
     Route: 065

REACTIONS (36)
  - Personality change [Fatal]
  - Posture abnormal [Fatal]
  - Feeding disorder [Fatal]
  - Hypertension [Fatal]
  - Suicide attempt [Fatal]
  - Drug dependence [Fatal]
  - Drug withdrawal syndrome [Fatal]
  - Cold sweat [Fatal]
  - Memory impairment [Fatal]
  - General physical health deterioration [Fatal]
  - Gait disturbance [Fatal]
  - Hallucination [Fatal]
  - Fatigue [Fatal]
  - Dizziness [Fatal]
  - Somnolence [Fatal]
  - Tinnitus [Fatal]
  - Sleep disorder [Fatal]
  - Suicidal ideation [Fatal]
  - Tremor [Fatal]
  - Nightmare [Fatal]
  - Disturbance in attention [Fatal]
  - Pain [Fatal]
  - Insomnia [Fatal]
  - Headache [Fatal]
  - Libido disorder [Fatal]
  - Dissociation [Fatal]
  - Depression [Fatal]
  - Aggression [Fatal]
  - Constipation [Fatal]
  - Mental disorder [Fatal]
  - Pyrexia [Fatal]
  - Muscle spasms [Fatal]
  - Weight decreased [Fatal]
  - Completed suicide [Fatal]
  - Paternal exposure during pregnancy [Fatal]
  - Overdose [Fatal]
